FAERS Safety Report 16375662 (Version 1)
Quarter: 2019Q2

REPORT INFORMATION
  Report Type: Other
  Country: IT (occurrence: IT)
  Receive Date: 20190531
  Receipt Date: 20190531
  Transmission Date: 20190711
  Serious: Yes (Other)
  Sender: FDA-Public Use
  Company Number: IT-MACLEODS PHARMACEUTICALS US LTD-MAC2019021461

PATIENT

DRUGS (1)
  1. LEVOFLOXACIN TABLET [Suspect]
     Active Substance: LEVOFLOXACIN
     Indication: PHARYNGITIS
     Dosage: UNK,
     Route: 048
     Dates: start: 20170518, end: 20170524

REACTIONS (3)
  - Plantar fasciitis [Recovered/Resolved]
  - Tendonitis [Recovered/Resolved]
  - Neuropathy peripheral [Recovered/Resolved]

NARRATIVE: CASE EVENT DATE: 20170525
